FAERS Safety Report 23686213 (Version 1)
Quarter: 2024Q1

REPORT INFORMATION
  Report Type: Spontaneous
  Country: US (occurrence: US)
  Receive Date: 20240329
  Receipt Date: 20240329
  Transmission Date: 20240410
  Serious: No
  Sender: FDA-Public Use
  Company Number: US-002147023-NVSC2024US068052

PATIENT

DRUGS (1)
  1. LEQVIO [Suspect]
     Active Substance: INCLISIRAN SODIUM
     Indication: Low density lipoprotein
     Dosage: 284 MG (DAY ONE, 3 MONTHS, EVERY 6 MONTHS THEREAFTER)
     Route: 058
     Dates: start: 20240307, end: 20240307

REACTIONS (1)
  - Injection site erythema [Unknown]
